FAERS Safety Report 5099299-0 (Version None)
Quarter: 2006Q3

REPORT INFORMATION
  Report Type: 
  Country: None (occurrence: None)
  Receive Date: 20060728
  Receipt Date: 20060504
  Transmission Date: 20061208
  Serious: No
  Sender: FDA-Public Use
  Company Number: COT_0519_2006

PATIENT
  Age: 45 Year
  Sex: Female

DRUGS (5)
  1. VENTAVIS [Suspect]
     Indication: PULMONARY HYPERTENSION
     Dosage: 5 MCG 6TO7X/DAY IH
     Dates: start: 20051001
  2. TRACLEER [Concomitant]
  3. COUMADIN [Concomitant]
  4. LASIX [Concomitant]
  5. ALDACTONE [Concomitant]

REACTIONS (1)
  - VARICOSE VEIN [None]
